FAERS Safety Report 18448070 (Version 2)
Quarter: 2020Q4

REPORT INFORMATION
  Report Type: Spontaneous
  Country: BR (occurrence: BR)
  Receive Date: 20201031
  Receipt Date: 20201103
  Transmission Date: 20210114
  Serious: Yes (Other)
  Sender: FDA-Public Use
  Company Number: BR-ABBVIE-20P-020-3629674-00

PATIENT
  Sex: Female

DRUGS (3)
  1. SYNTHROID [Suspect]
     Active Substance: LEVOTHYROXINE SODIUM
     Indication: TRI-IODOTHYRONINE FREE ABNORMAL
     Dosage: DAILY DOSE 100 MICROGRAM, ADMINISTERED IN FASTING 30 MIN BEFORE EATING;
     Route: 048
  2. SYNTHROID [Suspect]
     Active Substance: LEVOTHYROXINE SODIUM
     Indication: THYROXINE ABNORMAL
     Dosage: DAILY DOSE 88 MICROGRAM, ADMINISTERED IN FASTING 30 MIN BEFORE EATING;
     Route: 048
  3. SYNTHROID [Suspect]
     Active Substance: LEVOTHYROXINE SODIUM
     Indication: BLOOD THYROID STIMULATING HORMONE ABNORMAL
     Dosage: DAILY DOSE 88 MICROGRAM, ADMINISTERED IN FASTING 30 MIN BEFORE EATING;
     Route: 048

REACTIONS (6)
  - Cholecystectomy [Unknown]
  - Blood cholesterol abnormal [Unknown]
  - Arthralgia [Unknown]
  - Arthropathy [Unknown]
  - Blood triglycerides abnormal [Unknown]
  - Hypertension [Unknown]
